FAERS Safety Report 8299124-0 (Version None)
Quarter: 2012Q2

REPORT INFORMATION
  Report Type: 
  Country: None (occurrence: None)
  Receive Date: 20120419
  Receipt Date: 20120411
  Transmission Date: 20120825
  Serious: Yes (Death, Hospitalization)
  Sender: FDA-Public Use
  Company Number: DE-ROCHE-1002788

PATIENT
  Age: 65 Year
  Sex: Male
  Weight: 70 kg

DRUGS (19)
  1. IRINOTECAN HCL [Suspect]
     Indication: GLIOBLASTOMA
     Dosage: LAST DOSE OF SAE: 19 OCT 2011
     Route: 042
     Dates: start: 20101229
  2. KEPPRA [Concomitant]
     Dates: start: 20120213
  3. PANTOPRAZOLE [Concomitant]
     Dates: start: 20120213
  4. BAYOTENSIN [Concomitant]
     Dates: start: 20110601
  5. FINASTERID [Concomitant]
     Dates: start: 20101013
  6. SANDOCAL-D [Concomitant]
     Dates: start: 20101013
  7. ZOFRAN [Concomitant]
     Dates: start: 20110616
  8. ZENTROPIL [Concomitant]
     Dates: start: 20101013, end: 20101111
  9. FRAXIPARIN [Concomitant]
     Route: 058
     Dates: start: 20120213
  10. CLEMASTINE FUMARATE [Concomitant]
     Dosage: 1/2 MG
     Dates: start: 20101201, end: 20101201
  11. DIPYRONE TAB [Concomitant]
     Dates: start: 20101102
  12. ZANTAC [Concomitant]
     Dosage: 1/50 MG
     Dates: start: 20101201, end: 20101201
  13. FRAXIPARIN [Concomitant]
     Dates: start: 20101013
  14. LEVOTHYROXINE SODIUM [Concomitant]
     Indication: HYPOTHYROIDISM
     Dosage: DAILY DOSE: 0.05
     Dates: start: 20120213
  15. CIPROFLOXACIN [Concomitant]
     Dates: start: 20120213, end: 20120215
  16. KEPPRA [Concomitant]
     Dates: start: 20101112
  17. AVASTIN [Suspect]
     Indication: GLIOBLASTOMA
     Dosage: LAST DOSE OF SAE 19 OCT 2011
     Route: 042
     Dates: start: 20101117
  18. NEXIUM [Concomitant]
     Dates: start: 20101013, end: 20101102
  19. DEXAMETHASONE [Concomitant]
     Dates: start: 20101013

REACTIONS (3)
  - PANIC ATTACK [None]
  - GRAND MAL CONVULSION [None]
  - GENERAL PHYSICAL HEALTH DETERIORATION [None]
